FAERS Safety Report 8971566 (Version 1)
Quarter: 2012Q4

REPORT INFORMATION
  Report Type: 
  Country: GB (occurrence: GB)
  Receive Date: 20121217
  Receipt Date: 20121217
  Transmission Date: 20130627
  Serious: Yes (Other)
  Sender: FDA-Public Use
  Company Number: GB-ELI_LILLY_AND_COMPANY-GB201212003065

PATIENT
  Age: 72 Year
  Sex: Female
  Weight: 72.3 kg

DRUGS (16)
  1. BYDUREON [Suspect]
     Dosage: 2 mg, weekly (1/W)
     Route: 058
     Dates: start: 20120702, end: 20121119
  2. BYETTA [Suspect]
     Dosage: UNK, unknown
     Route: 058
     Dates: start: 20090501, end: 20110701
  3. ATORVASTATIN [Concomitant]
     Dosage: UNK, unknown
  4. CLOPIDOGREL [Concomitant]
     Dosage: UNK, unknown
  5. CODEINE PHOSPHATE [Concomitant]
     Dosage: UNK, unknown
  6. EZETIMIBE [Concomitant]
     Dosage: UNK, unknown
  7. FLUTICASONE [Concomitant]
     Dosage: UNK, unknown
  8. FUROSEMIDE [Concomitant]
     Dosage: UNK, unknown
  9. GABAPENTIN [Concomitant]
     Dosage: UNK, unknown
  10. IVABRADINE [Concomitant]
     Dosage: UNK, unknown
  11. LANSOPRAZOLE [Concomitant]
     Dosage: UNK, unknown
  12. LERCANIDIPINE [Concomitant]
     Dosage: UNK, unknown
  13. PARACETAMOL [Concomitant]
     Dosage: UNK, unknown
  14. RAMIPRIL [Concomitant]
     Dosage: UNK, unknown
  15. SALBUTAMOL [Concomitant]
     Dosage: UNK, unknown
  16. TILDIEM LA [Concomitant]
     Dosage: UNK, unknown

REACTIONS (1)
  - Benign neoplasm of thyroid gland [Not Recovered/Not Resolved]
